FAERS Safety Report 6963560-2 (Version None)
Quarter: 2010Q3

REPORT INFORMATION
  Report Type: 
  Country: None (occurrence: None)
  Receive Date: 20100830
  Receipt Date: 20100820
  Transmission Date: 20110219
  Serious: Yes (Hospitalization, Other)
  Sender: FDA-Public Use
  Company Number: WAES 1007USA04124

PATIENT
  Age: 65 Year
  Sex: Male

DRUGS (18)
  1. DECADRON [Suspect]
     Dosage: 20 MG/DAILY, PO
     Route: 048
     Dates: start: 20100618
  2. CAP VORINOSTAT [Suspect]
     Indication: MULTIPLE MYELOMA
     Dosage: 400 MG/DAILY, PO
     Route: 048
     Dates: start: 20090807, end: 20100730
  3. CAP VORINOSTAT [Suspect]
     Indication: MULTIPLE MYELOMA
     Dosage: 400 MG/DAILY, PO
     Route: 048
     Dates: start: 20100806
  4. VELCADE [Suspect]
     Indication: MULTIPLE MYELOMA
     Dosage: 1.25 MG/DAILY, IV
     Route: 042
     Dates: start: 20090807, end: 20100830
  5. VELCADE [Suspect]
     Indication: MULTIPLE MYELOMA
     Dosage: 1.25 MG/DAILY, IV
     Route: 042
     Dates: start: 20100806
  6. ENDEP [Concomitant]
  7. ENDONE [Concomitant]
  8. LOPERAMIDE [Concomitant]
  9. NULYTELY [Concomitant]
  10. OCTAGAM [Concomitant]
  11. ACETAMINOPHEN W/ CODEINE [Concomitant]
  12. PROBITOR [Concomitant]
  13. ASPIRIN [Concomitant]
  14. BLOOD CELLS, RED [Concomitant]
  15. ONDANSETRON HYDROCHLORIDE [Concomitant]
  16. PLATELETS [Concomitant]
  17. SIMVASTATIN [Concomitant]
  18. TEMAZEPAM [Concomitant]

REACTIONS (4)
  - RED BLOOD CELLS URINE POSITIVE [None]
  - SEPSIS [None]
  - URINARY SEDIMENT PRESENT [None]
  - WHITE BLOOD CELLS URINE POSITIVE [None]
